APPROVED DRUG PRODUCT: NORLESTRIN 21 2.5/50
Active Ingredient: ETHINYL ESTRADIOL; NORETHINDRONE ACETATE
Strength: 0.05MG;2.5MG
Dosage Form/Route: TABLET;ORAL-21
Application: N016852 | Product #001
Applicant: PARKE DAVIS LABORATORIES DIV WARNER LAMBERT CO
Approved: Approved Prior to Jan 1, 1982 | RLD: No | RS: No | Type: DISCN